FAERS Safety Report 12438290 (Version 1)
Quarter: 2016Q2

REPORT INFORMATION
  Report Type: Spontaneous
  Country: US (occurrence: US)
  Receive Date: 20160606
  Receipt Date: 20160606
  Transmission Date: 20160815
  Serious: Yes (Hospitalization)
  Sender: FDA-Public Use
  Company Number: US-DSJP-DSU-2015-127181

PATIENT
  Sex: Female
  Weight: 55.33 kg

DRUGS (2)
  1. LISINOPRIL. [Concomitant]
     Active Substance: LISINOPRIL
     Indication: PRODUCT USED FOR UNKNOWN INDICATION
     Dosage: 10 MG, QD
     Dates: start: 200904, end: 200910
  2. BENICAR [Suspect]
     Active Substance: OLMESARTAN MEDOXOMIL
     Indication: HYPERTENSION
     Dosage: 20 MG, UNK
     Route: 048
     Dates: start: 200910, end: 201303

REACTIONS (4)
  - Cognitive disorder [Unknown]
  - Malabsorption [Unknown]
  - Lethargy [Unknown]
  - Anaemia [Unknown]

NARRATIVE: CASE EVENT DATE: 2013
